FAERS Safety Report 4754308-0 (Version None)
Quarter: 2005Q3

REPORT INFORMATION
  Report Type: 
  Country: None (occurrence: None)
  Receive Date: 20050826
  Receipt Date: 20050826
  Transmission Date: 20060218
  Serious: No
  Sender: FDA-Public Use
  Company Number: None

PATIENT
  Age: 54 Year
  Sex: Male
  Weight: 214 kg

DRUGS (1)
  1. HYDREA [Suspect]
     Indication: THROMBOCYTHAEMIA
     Dosage: 50 MG TID
     Dates: start: 20040501

REACTIONS (1)
  - PLATELET COUNT INCREASED [None]
